FAERS Safety Report 13209290 (Version 1)
Quarter: 2017Q1

REPORT INFORMATION
  Report Type: Report from Study
  Country: ZA (occurrence: ZA)
  Receive Date: 20170209
  Receipt Date: 20170209
  Transmission Date: 20170428
  Serious: Yes (Hospitalization)
  Sender: FDA-Public Use
  Company Number: PHHY2017ZA016832

PATIENT
  Sex: Female

DRUGS (12)
  1. TRUSTAN [Concomitant]
     Active Substance: ESOMEPRAZOLE
     Indication: ULCER
     Dosage: 1 DF, QD
     Route: 048
  2. ATOLIP [Concomitant]
     Indication: BLOOD CHOLESTEROL
     Dosage: 1 DF, QD
     Route: 048
  3. ADCO-ZOLPIDEM [Concomitant]
     Active Substance: ZOLPIDEM TARTRATE
     Indication: INSOMNIA
     Dosage: 1 DF, QD
     Route: 048
  4. MITIL [Concomitant]
     Indication: NAUSEA
     Dosage: 1 DF, TID
     Route: 048
  5. MITIL [Concomitant]
     Indication: VOMITING
  6. VERAHEXAL 240 SR [Suspect]
     Active Substance: VERAPAMIL HYDROCHLORIDE
     Indication: HYPERTENSION
     Dosage: 240 MG, QD
     Route: 048
  7. MITIL [Concomitant]
     Indication: DIZZINESS
  8. LANCAP [Concomitant]
     Indication: GASTRIC ULCER
     Dosage: 1 DF, QD
     Route: 048
  9. TAREG [Concomitant]
     Active Substance: VALSARTAN
     Indication: HYPERTENSION
     Dosage: 1 DF, QD
     Route: 048
  10. LANCAP [Concomitant]
     Indication: DUODENAL ULCER
  11. MITIL [Concomitant]
     Indication: ANXIETY
  12. FOXAIR [Concomitant]
     Active Substance: FLUTICASONE PROPIONATE\SALMETEROL XINAFOATE
     Indication: ASTHMA
     Dosage: 1 INHALATION, BID
     Route: 048

REACTIONS (2)
  - Gastrointestinal disorder [Unknown]
  - Bladder disorder [Unknown]
